FAERS Safety Report 23960556 (Version 1)
Quarter: 2024Q2

REPORT INFORMATION
  Report Type: Spontaneous
  Country: US (occurrence: None)
  Receive Date: 20240610
  Receipt Date: 20240610
  Transmission Date: 20240715
  Serious: No
  Sender: FDA-Public Use
  Company Number: None

PATIENT
  Age: 90 Year
  Sex: Female

DRUGS (1)
  1. OJJAARA [Suspect]
     Active Substance: MOMELOTINIB DIHYDROCHLORIDE MONOHYDRATE

REACTIONS (2)
  - White blood cell count increased [None]
  - Atrial fibrillation [None]

NARRATIVE: CASE EVENT DATE: 20240607
